FAERS Safety Report 19913169 (Version 3)
Quarter: 2021Q4

REPORT INFORMATION
  Report Type: Spontaneous
  Country: FR (occurrence: FR)
  Receive Date: 20211004
  Receipt Date: 20211126
  Transmission Date: 20220303
  Serious: Yes (Death, Other)
  Sender: FDA-Public Use
  Company Number: FR-MYLANLABS-2021M1068902

PATIENT
  Sex: Female

DRUGS (1)
  1. ARIXTRA [Suspect]
     Active Substance: FONDAPARINUX SODIUM
     Indication: Superficial vein thrombosis
     Dosage: UNK
     Route: 065
     Dates: start: 201912

REACTIONS (4)
  - Drug ineffective [Fatal]
  - Dyspnoea [Fatal]
  - Neoplasm malignant [Unknown]
  - Pulmonary embolism [Unknown]
